FAERS Safety Report 8845695 (Version 1)
Quarter: 2012Q4

REPORT INFORMATION
  Report Type: 
  Country: DE (occurrence: DE)
  Receive Date: 20121017
  Receipt Date: 20121017
  Transmission Date: 20130627
  Serious: Yes (Other)
  Sender: FDA-Public Use
  Company Number: DE-ROCHE-1145980

PATIENT
  Sex: Female
  Weight: 119 kg

DRUGS (1)
  1. RITUXIMAB [Suspect]
     Indication: RHEUMATOID ARTHRITIS
     Route: 065
     Dates: start: 20120704, end: 20120704

REACTIONS (4)
  - Obstructive airways disorder [Unknown]
  - Hypertensive crisis [Unknown]
  - Dyspnoea [Unknown]
  - Nausea [Unknown]
